FAERS Safety Report 8853595 (Version 1)
Quarter: 2012Q4

REPORT INFORMATION
  Report Type: 
  Country: US (occurrence: US)
  Receive Date: 20121023
  Receipt Date: 20121023
  Transmission Date: 20130627
  Serious: No
  Sender: FDA-Public Use
  Company Number: US-B.I. PHARMACEUTICALS,INC./RIDGEFIELD-2012-BP-25376BP

PATIENT
  Age: 45 Year
  Sex: Male

DRUGS (2)
  1. ZANTAC (RANITIDINE HYDROCHLORIDE) [Suspect]
     Indication: GASTROOESOPHAGEAL REFLUX DISEASE
  2. ZANTAC (RANITIDINE HYDROCHLORIDE) [Suspect]
     Indication: DYSPEPSIA

REACTIONS (2)
  - Gastrooesophageal reflux disease [Unknown]
  - Dyspepsia [Unknown]
